FAERS Safety Report 4620366-7 (Version None)
Quarter: 2005Q1

REPORT INFORMATION
  Report Type: 
  Country: None (occurrence: None)
  Receive Date: 20050324
  Receipt Date: 20050309
  Transmission Date: 20050727
  Serious: Yes (Hospitalization, Other)
  Sender: FDA-Public Use
  Company Number: A-US2004-07136

PATIENT
  Age: 58 Year
  Sex: Female
  Weight: 119.3 kg

DRUGS (10)
  1. TRACLEER [Suspect]
     Indication: PULMONARY HYPERTENSION
     Dosage: SEE IMAGE
     Route: 048
     Dates: start: 20040205, end: 20040304
  2. TRACLEER [Suspect]
     Indication: PULMONARY HYPERTENSION
     Dosage: SEE IMAGE
     Route: 048
     Dates: start: 20040305, end: 20040714
  3. TRACLEER [Suspect]
     Indication: PULMONARY HYPERTENSION
     Dosage: SEE IMAGE
     Route: 048
     Dates: start: 20040715, end: 20040811
  4. DIOVAN ^CIBA-GEIGY^ (VALSARTAN) [Concomitant]
  5. LASIX [Concomitant]
  6. KLOR-CON [Concomitant]
  7. PROTONIX [Concomitant]
  8. PROCARDIA [Concomitant]
  9. ADVAIR DISKUS 100/50 [Concomitant]
  10. OXYGEN (OXYGEN) [Concomitant]

REACTIONS (14)
  - AUTOIMMUNE HEPATITIS [None]
  - BLOOD CREATININE INCREASED [None]
  - BLOOD IMMUNOGLOBULIN G INCREASED [None]
  - BLOOD POTASSIUM INCREASED [None]
  - DIARRHOEA [None]
  - HEADACHE [None]
  - HEPATIC CIRRHOSIS [None]
  - HEPATIC FIBROSIS [None]
  - HEPATIC NECROSIS [None]
  - HEPATIC STEATOSIS [None]
  - HEPATITIS ACUTE [None]
  - HYPERVOLAEMIA [None]
  - INFLUENZA LIKE ILLNESS [None]
  - INJURY [None]
